FAERS Safety Report 9682315 (Version 1)
Quarter: 2013Q4

REPORT INFORMATION
  Report Type: Spontaneous
  Country: US (occurrence: US)
  Receive Date: 20131112
  Receipt Date: 20131112
  Transmission Date: 20140711
  Serious: Yes (Hospitalization)
  Sender: FDA-Public Use
  Company Number: US-BIOGENIDEC-2013BI107338

PATIENT
  Sex: Male

DRUGS (15)
  1. AVONEX [Suspect]
     Indication: MULTIPLE SCLEROSIS
     Route: 030
     Dates: start: 20130220
  2. ADVAIR DISKUS [Concomitant]
  3. ALLOPURINOL [Concomitant]
  4. CLARITIN [Concomitant]
  5. FISH OIL [Concomitant]
  6. GABAPENTIN [Concomitant]
  7. LIPITOR [Concomitant]
  8. METOPROLOL TARTATE [Concomitant]
  9. NASALCROM [Concomitant]
  10. OXYBUTYNIN CHLORIDE [Concomitant]
  11. PROVENTIL HFA [Concomitant]
  12. ROPINIROLE HCL [Concomitant]
  13. VITAMIN B12 [Concomitant]
  14. VITAMIN C [Concomitant]
  15. VITAMIN E COMPLETE [Concomitant]

REACTIONS (2)
  - Cerebrovascular accident [Unknown]
  - Cardiac operation [Unknown]
